FAERS Safety Report 14747422 (Version 1)
Quarter: 2018Q2

REPORT INFORMATION
  Report Type: Spontaneous
  Country: US (occurrence: US)
  Receive Date: 20180411
  Receipt Date: 20180411
  Transmission Date: 20180711
  Serious: Yes (Hospitalization)
  Sender: FDA-Public Use
  Company Number: US-BRACCO-2018US01909

PATIENT
  Age: 65 Year
  Sex: Male

DRUGS (7)
  1. SERTRALINE [Concomitant]
     Active Substance: SERTRALINE HYDROCHLORIDE
     Dosage: 50 MG, QD
     Route: 048
  2. SYMBICORT [Concomitant]
     Active Substance: BUDESONIDE\FORMOTEROL FUMARATE DIHYDRATE
     Dosage: 0.5 MG/2ML INHALATION
     Route: 055
  3. PLAVIX [Concomitant]
     Active Substance: CLOPIDOGREL BISULFATE
     Dosage: 75 MG, QD
     Route: 048
  4. ATORVASTATIN [Concomitant]
     Active Substance: ATORVASTATIN
     Dosage: 40 MG, QD
     Route: 048
  5. ASPIRIN                            /00002701/ [Concomitant]
     Active Substance: ASPIRIN
     Dosage: 81 MG, QD
     Route: 048
  6. MULTIHANCE [Suspect]
     Active Substance: GADOBENATE DIMEGLUMINE
     Indication: NUCLEAR MAGNETIC RESONANCE IMAGING BRAIN
     Dosage: 12 ML, SINGLE
     Route: 042
     Dates: start: 20180321, end: 20180321
  7. BROVANA [Concomitant]
     Active Substance: ARFORMOTEROL TARTRATE
     Dosage: 15 MCG/2 ML NEBULIZER TREATMENT
     Route: 055

REACTIONS (6)
  - Blood pressure systolic decreased [Recovered/Resolved]
  - Cyanosis [Recovered/Resolved]
  - Respiration abnormal [Recovered/Resolved]
  - Throat tightness [Recovered/Resolved]
  - Loss of consciousness [Recovered/Resolved]
  - Pulse absent [Recovered/Resolved]

NARRATIVE: CASE EVENT DATE: 20180321
